FAERS Safety Report 5953780-8 (Version None)
Quarter: 2008Q4

REPORT INFORMATION
  Report Type: 
  Country: None (occurrence: None)
  Receive Date: 20081114
  Receipt Date: 20081104
  Transmission Date: 20090506
  Serious: Yes (Hospitalization)
  Sender: FDA-Public Use
  Company Number: BR-PFIZER INC-2008094510

PATIENT
  Sex: Male
  Weight: 78 kg

DRUGS (7)
  1. ZITHROMAX [Suspect]
     Indication: PNEUMONIA
     Dates: start: 20080101
  2. UNASYN ORAL [Suspect]
     Route: 048
     Dates: start: 20080101
  3. AMARYL [Concomitant]
  4. PRAVASTATIN [Concomitant]
  5. SELOKEN [Concomitant]
  6. CAPOTEN [Concomitant]
  7. PLAVIX [Concomitant]

REACTIONS (8)
  - APPLICATION SITE ERYTHEMA [None]
  - APPLICATION SITE INFLAMMATION [None]
  - APPLICATION SITE PAIN [None]
  - BACTERAEMIA [None]
  - GASTRIC DISORDER [None]
  - THROMBOSIS [None]
  - VEIN DISORDER [None]
  - WEIGHT DECREASED [None]
